FAERS Safety Report 25930209 (Version 1)
Quarter: 2025Q4

REPORT INFORMATION
  Report Type: Spontaneous
  Country: US (occurrence: None)
  Receive Date: 20251015
  Receipt Date: 20251015
  Transmission Date: 20260118
  Serious: Yes (Death)
  Sender: FDA-CTU
  Company Number: None

PATIENT
  Age: 32 Year
  Sex: Male

DRUGS (1)
  1. XCOPRI [Suspect]
     Active Substance: CENOBAMATE
     Indication: Epilepsy
     Dosage: 250 MG DAILY ORAL ?
     Route: 048
     Dates: start: 20250404, end: 20251013

REACTIONS (1)
  - Seizure [None]

NARRATIVE: CASE EVENT DATE: 20251013
